FAERS Safety Report 9002916 (Version 2)
Quarter: 2013Q2

REPORT INFORMATION
  Report Type: Spontaneous
  Country: US (occurrence: None)
  Receive Date: 20120508
  Receipt Date: 20121107
  Transmission Date: 20140414
  Serious: Yes (Other)
  Sender: FDA-Public Use
  Company Number: 2012HGS-003119

PATIENT
  Age: 50 Year
  Sex: Female
  Weight: 74.84 kg

DRUGS (7)
  1. BENLYSTA [Suspect]
     Indication: SYSTEMIC LUPUS ERYTHEMATOSUS
     Dosage: 1 IN 28 D, INTRAVENOUS DRIP
     Dates: start: 20121207
  2. METHOTREXATE (METHOTREXATE) [Concomitant]
  3. HYDROCHLOROTHIAZIDE (HYDROCHLOROTHIAZIDE) [Concomitant]
  4. FOLIC ACID (FOLIC ACID) [Concomitant]
  5. VITAMIN D (ERGOCALCIFEROL) [Concomitant]
  6. GABAPENTIN (GABAPENTIN) [Concomitant]
  7. TRAMADOL (TRAMADOL) [Concomitant]

REACTIONS (6)
  - Paraesthesia [None]
  - Stomatitis [None]
  - Vaginal lesion [None]
  - Vaginal haemorrhage [None]
  - Pain in extremity [None]
  - Headache [None]
